FAERS Safety Report 9656544 (Version 1)
Quarter: 2013Q4

REPORT INFORMATION
  Report Type: Report from Study
  Country: BR (occurrence: BR)
  Receive Date: 20131030
  Receipt Date: 20131030
  Transmission Date: 20140711
  Serious: Yes (Hospitalization, Other)
  Sender: FDA-Public Use
  Company Number: PHHY2013BR122678

PATIENT
  Age: 77 Year
  Sex: Female

DRUGS (4)
  1. DIOVAN [Suspect]
     Indication: HYPERTENSION
     Dosage: 160 MG, DAILY
     Route: 048
     Dates: end: 20130818
  2. CARVEDILOL [Concomitant]
     Dosage: 2 DF (6.25MG) DAILY
     Route: 048
  3. CLOPIDOGREL [Concomitant]
     Indication: ANTICOAGULANT THERAPY
     Dosage: 75 MG, DAILY
     Route: 048
  4. SUSTRATE [Concomitant]
     Dosage: 3 DF (20MG) DAILY
     Route: 048
     Dates: start: 20131018

REACTIONS (7)
  - Pulmonary oedema [Recovering/Resolving]
  - Infarction [Recovering/Resolving]
  - Venous occlusion [Recovering/Resolving]
  - Malaise [Recovering/Resolving]
  - Blood pressure increased [Recovering/Resolving]
  - Influenza [Recovering/Resolving]
  - Dyspnoea [Recovering/Resolving]
